FAERS Safety Report 7163501-1 (Version None)
Quarter: 2010Q4

REPORT INFORMATION
  Report Type: 
  Country: None (occurrence: None)
  Receive Date: 20101215
  Receipt Date: 20100428
  Transmission Date: 20110411
  Serious: Yes (Other)
  Sender: FDA-Public Use
  Company Number: US-PFIZER INC-2010054462

PATIENT
  Age: 78 Year
  Sex: Male

DRUGS (2)
  1. LYRICA [Suspect]
     Dosage: 100 MG, 3X/DAY
  2. CYMBALTA [Suspect]

REACTIONS (5)
  - BLINDNESS UNILATERAL [None]
  - DRUG INEFFECTIVE [None]
  - MALAISE [None]
  - OPTIC NERVE INFARCTION [None]
  - WEIGHT INCREASED [None]
